FAERS Safety Report 24137780 (Version 1)
Quarter: 2024Q3

REPORT INFORMATION
  Report Type: Report from Study
  Country: BR (occurrence: BR)
  Receive Date: 20240725
  Receipt Date: 20240725
  Transmission Date: 20241016
  Serious: Yes (Death, Hospitalization)
  Sender: BOEHRINGER INGELHEIM
  Company Number: BR-BoehringerIngelheim-2024-BI-041386

PATIENT
  Age: 75 Year
  Sex: Male
  Weight: 83 kg

DRUGS (10)
  1. OFEV [Suspect]
     Active Substance: NINTEDANIB
     Indication: Idiopathic pulmonary fibrosis
     Route: 048
     Dates: start: 202105
  2. OFEV [Suspect]
     Active Substance: NINTEDANIB
  3. OFEV [Suspect]
     Active Substance: NINTEDANIB
     Dates: start: 2023
  4. OFEV [Suspect]
     Active Substance: NINTEDANIB
     Dates: start: 20240510, end: 202405
  5. AZITHROMYCIN [Suspect]
     Active Substance: AZITHROMYCIN
     Indication: Product used for unknown indication
     Dosage: 1 TABLET A DAY, ORALLY, 3 TIMES A WEEK (MONDAY, WEDNESDAY AND FRIDAY)
     Route: 048
  6. AZITHROMYCIN [Suspect]
     Active Substance: AZITHROMYCIN
     Dosage: 1 TABLET A DAY, ORALLY, 3 TIMES A WEEK (MONDAY, WEDNESDAY AND FRIDAY)
     Route: 048
     Dates: start: 202311
  7. GLYCOPYRRONIUM\INDACATEROL [Concomitant]
     Active Substance: GLYCOPYRRONIUM\INDACATEROL
     Indication: Emphysema
     Dosage: 1 CAPSULE THAT HE ?PUTS IN HIS DEVICE? AND SUCKS, ONCE A DAY.
     Dates: start: 2018
  8. PRENI [Concomitant]
     Indication: Fibrosis
     Dates: start: 202104
  9. PRENI [Concomitant]
  10. MORPHINE HYDROCHLORIDE [Concomitant]
     Active Substance: MORPHINE HYDROCHLORIDE
     Indication: Product used for unknown indication

REACTIONS (22)
  - Idiopathic pulmonary fibrosis [Fatal]
  - Pneumonia [Fatal]
  - Anaemia [Fatal]
  - Acute kidney injury [Fatal]
  - Renal failure [Fatal]
  - Diarrhoea [Not Recovered/Not Resolved]
  - Dysentery [Unknown]
  - Fatigue [Unknown]
  - Dyspnoea [Unknown]
  - Oxygen saturation decreased [Not Recovered/Not Resolved]
  - Malaise [Unknown]
  - Pulmonary function test decreased [Unknown]
  - Asthenia [Unknown]
  - Dysentery [Unknown]
  - Weight decreased [Unknown]
  - Decreased appetite [Unknown]
  - Vomiting [Unknown]
  - Renal failure [Unknown]
  - Dysphagia [Unknown]
  - Pneumonia [Unknown]
  - Malaise [Unknown]
  - COVID-19 [Unknown]

NARRATIVE: CASE EVENT DATE: 20210101
